FAERS Safety Report 6892640-5 (Version None)
Quarter: 2010Q3

REPORT INFORMATION
  Report Type: 
  Country: None (occurrence: None)
  Receive Date: 20100731
  Receipt Date: 20080731
  Transmission Date: 20110219
  Serious: No
  Sender: FDA-Public Use
  Company Number: US-PFIZER INC-2008065959

PATIENT
  Sex: Male
  Weight: 68.2 kg

DRUGS (3)
  1. GABAPENTIN [Suspect]
     Route: 048
     Dates: start: 20070101, end: 20080101
  2. LYRICA [Suspect]
     Route: 048
     Dates: start: 20080101
  3. ULTRAM [Concomitant]
     Route: 048

REACTIONS (2)
  - FATIGUE [None]
  - FEELING ABNORMAL [None]
